FAERS Safety Report 9269284 (Version 1)
Quarter: 2013Q2

REPORT INFORMATION
  Report Type: Spontaneous
  Country: US (occurrence: US)
  Receive Date: 20130503
  Receipt Date: 20130503
  Transmission Date: 20140414
  Serious: No
  Sender: FDA-Public Use
  Company Number: US-PFIZER INC-2013136243

PATIENT
  Age: 78 Year
  Sex: Female
  Weight: 38.55 kg

DRUGS (2)
  1. ADVIL PM [Suspect]
     Indication: PAIN
     Dosage: 1 CAPLET, 1X/DAY
     Route: 048
     Dates: start: 20130425, end: 20130426
  2. ADVIL PM [Suspect]
     Indication: INSOMNIA

REACTIONS (8)
  - Insomnia [Recovered/Resolved]
  - Cardiac discomfort [Recovered/Resolved]
  - Feeling abnormal [Recovered/Resolved]
  - Psychomotor hyperactivity [Recovered/Resolved]
  - Anxiety [Recovered/Resolved]
  - Gastric disorder [Recovered/Resolved]
  - Back pain [Recovered/Resolved]
  - Chest pain [Recovered/Resolved]
